FAERS Safety Report 17434027 (Version 1)
Quarter: 2020Q1

REPORT INFORMATION
  Report Type: Spontaneous
  Country: US (occurrence: US)
  Receive Date: 20200203
  Receipt Date: 20200203
  Transmission Date: 20200409
  Serious: No
  Sender: FDA-Public Use
  Company Number: None

PATIENT
  Age: 31 Year
  Sex: Female

DRUGS (1)
  1. COLISTIMETHATE [Suspect]
     Active Substance: COLISTIMETHATE SODIUM
     Route: 055

REACTIONS (3)
  - Therapeutic product effect incomplete [None]
  - Sinusitis [None]
  - Condition aggravated [None]

NARRATIVE: CASE EVENT DATE: 20200203
